FAERS Safety Report 8470560-2 (Version None)
Quarter: 2012Q2

REPORT INFORMATION
  Report Type: 
  Country: None (occurrence: None)
  Receive Date: 20120627
  Receipt Date: 20120621
  Transmission Date: 20120825
  Serious: Yes (Hospitalization, Other)
  Sender: FDA-Public Use
  Company Number: PHHY2012MX049103

PATIENT
  Sex: Female

DRUGS (4)
  1. EXFORGE HCT [Suspect]
     Indication: HYPERTENSION
     Dosage: 1 DF(160/5/12.5 MG),  PER DAY
     Dates: start: 20120528
  2. EXFORGE HCT [Suspect]
     Dosage: 2 DF (160/5/12.5 MG),  PER DAY
     Dates: start: 20120501
  3. LOPRESSOR [Concomitant]
     Indication: HYPERTENSION
     Dosage: 1 DF, PER DAY
     Dates: start: 20120301
  4. PRODAXAR [Concomitant]
     Indication: ANTICOAGULANT THERAPY
     Dosage: 1 TABLET, DAILY
     Dates: start: 20120601

REACTIONS (4)
  - HIP FRACTURE [None]
  - FEMUR FRACTURE [None]
  - FALL [None]
  - BLOOD PRESSURE FLUCTUATION [None]
